FAERS Safety Report 5795316-0 (Version None)
Quarter: 2008Q2

REPORT INFORMATION
  Report Type: 
  Country: None (occurrence: None)
  Receive Date: 20080626
  Receipt Date: 20080617
  Transmission Date: 20081010
  Serious: No
  Sender: FDA-Public Use
  Company Number: APP200800539

PATIENT
  Age: 57 Year
  Sex: Male
  Weight: 94.8018 kg

DRUGS (1)
  1. FLUOROURACIL INJ [Suspect]
     Indication: NEOPLASM MALIGNANT
     Dosage: 876 MG, 92 WEEKS TOTAL TREATMENT PLAN., INTRAVENOUS BOLUS
     Route: 040
     Dates: start: 20080617, end: 20080617

REACTIONS (2)
  - DYSPNOEA [None]
  - RESPIRATORY DISTRESS [None]
